FAERS Safety Report 10155833 (Version 2)
Quarter: 2014Q3

REPORT INFORMATION
  Report Type: Spontaneous
  Country: US (occurrence: US)
  Receive Date: 20140506
  Receipt Date: 20140711
  Transmission Date: 20150326
  Serious: Yes (Other)
  Sender: FDA-Public Use
  Company Number: US-PFIZER INC-2014120978

PATIENT
  Age: 62 Year
  Sex: Female
  Weight: 84 kg

DRUGS (7)
  1. TRIAMTERENE. [Concomitant]
     Active Substance: TRIAMTERENE
     Dosage: UNK
  2. LYRICA [Suspect]
     Active Substance: PREGABALIN
     Indication: INTERVERTEBRAL DISC PROTRUSION
  3. IBUPROFEN. [Concomitant]
     Active Substance: IBUPROFEN
     Dosage: UNK
  4. METHADONE [Concomitant]
     Active Substance: METHADONE HYDROCHLORIDE
     Dosage: 300 NG/M
  5. PROPOXYPHENE [Concomitant]
     Active Substance: PROPOXYPHENE
     Dosage: 300 NG/ML
  6. LYRICA [Suspect]
     Active Substance: PREGABALIN
     Indication: NEURALGIA
     Dosage: 25 MG, 2X/DAY
     Route: 048
  7. HYDROCODONE [Concomitant]
     Active Substance: HYDROCODONE
     Dosage: UNK

REACTIONS (6)
  - Electrocardiogram ST segment depression [Unknown]
  - Malaise [Unknown]
  - Anxiety [Unknown]
  - Mental status changes [Unknown]
  - Hypertension [Unknown]
  - Amnesia [Unknown]
